FAERS Safety Report 4616992-1 (Version None)
Quarter: 2005Q1

REPORT INFORMATION
  Report Type: 
  Country: None (occurrence: None)
  Receive Date: 20050318
  Receipt Date: 20050309
  Transmission Date: 20050727
  Serious: Yes (Hospitalization)
  Sender: FDA-Public Use
  Company Number: HQWYE002610MAR05

PATIENT
  Age: 3 Year
  Sex: Female

DRUGS (5)
  1. CHILDREN'S ADVIL [Suspect]
     Indication: PYREXIA
     Dosage: 300 MG 1X PER 1 DAY ORAL
     Route: 048
     Dates: start: 20050204, end: 20050209
  2. BRONCHOKOD (CARBOCISTEINE,) [Suspect]
     Dosage: 200 MG 1X PER 1 DAY
     Dates: start: 20050201, end: 20050209
  3. DOLIPRANE (PARACETAMOL,) [Suspect]
     Indication: PYREXIA
     Dosage: 600 MG 1X PER 1 DAY
     Dates: start: 20050204, end: 20050209
  4. NIFLURIL (NIFLUMIC ACID,) [Suspect]
     Indication: PYREXIA
     Dosage: 2 SUPPOS 1X PER 1 DAY
     Dates: start: 20050206, end: 20050209
  5. ORELOX (CEFPODOXIME PROXETIL,) [Suspect]
     Dosage: 40 MG 1X PER 1 DAY
     Dates: start: 20050204, end: 20050204

REACTIONS (3)
  - BACTERIAL INFECTION [None]
  - CONDITION AGGRAVATED [None]
  - PLEURISY [None]
